FAERS Safety Report 14963352 (Version 2)
Quarter: 2018Q2

REPORT INFORMATION
  Report Type: Spontaneous
  Country: US (occurrence: US)
  Receive Date: 20180601
  Receipt Date: 20180616
  Transmission Date: 20180711
  Serious: Yes (Hospitalization, Other)
  Sender: FDA-Public Use
  Company Number: US-AMGEN-USASP2018073104

PATIENT
  Age: 68 Year
  Sex: Female
  Weight: 77.55 kg

DRUGS (3)
  1. ENBREL [Suspect]
     Active Substance: ETANERCEPT
     Indication: RHEUMATOID ARTHRITIS
     Dosage: 50 MG, QWK
     Route: 058
     Dates: start: 2015
  2. METHOTREXATE. [Concomitant]
     Active Substance: METHOTREXATE
     Indication: FIBROMYALGIA
     Dosage: 0.8 MG, QWK
     Dates: start: 200202
  3. METHOTREXATE. [Concomitant]
     Active Substance: METHOTREXATE
     Indication: RHEUMATOID ARTHRITIS

REACTIONS (5)
  - Knee arthroplasty [Unknown]
  - Lack of injection site rotation [Recovered/Resolved]
  - Fall [Unknown]
  - Femur fracture [Unknown]
  - Injection site pain [Unknown]

NARRATIVE: CASE EVENT DATE: 201707
